FAERS Safety Report 25976512 (Version 1)
Quarter: 2025Q4

REPORT INFORMATION
  Report Type: Spontaneous
  Country: EU (occurrence: EU)
  Receive Date: 20251029
  Receipt Date: 20251029
  Transmission Date: 20260118
  Serious: Yes (Hospitalization)
  Sender: EISAI
  Company Number: None

PATIENT
  Sex: Female

DRUGS (3)
  1. DONEPEZIL [Suspect]
     Active Substance: DONEPEZIL
     Indication: Dementia Alzheimer^s type
     Route: 048
     Dates: start: 20250916, end: 20250917
  2. DONEPEZIL [Suspect]
     Active Substance: DONEPEZIL
     Route: 048
     Dates: start: 20250923
  3. DONEPEZIL [Suspect]
     Active Substance: DONEPEZIL
     Route: 048
     Dates: end: 20250915

REACTIONS (6)
  - Vomiting [Unknown]
  - Apathy [Unknown]
  - Product dispensing error [Unknown]
  - Accidental overdose [Unknown]
  - Product blister packaging issue [Unknown]
  - Product communication issue [Unknown]

NARRATIVE: CASE EVENT DATE: 20250901
